FAERS Safety Report 7130134-2 (Version None)
Quarter: 2010Q4

REPORT INFORMATION
  Report Type: 
  Country: None (occurrence: None)
  Receive Date: 20101201
  Receipt Date: 20101122
  Transmission Date: 20110411
  Serious: Yes (Death, Other)
  Sender: FDA-Public Use
  Company Number: IT-CELGENEUS-083-21880-10101266

PATIENT
  Age: 56 Year
  Sex: Female
  Weight: 61 kg

DRUGS (2)
  1. REVLIMID [Suspect]
     Indication: MULTIPLE MYELOMA
     Route: 048
  2. DEXAMETHASONE [Suspect]
     Indication: MULTIPLE MYELOMA
     Route: 065

REACTIONS (10)
  - ABDOMINAL PAIN UPPER [None]
  - ASTHENIA [None]
  - CARDIAC FAILURE [None]
  - MUCOSAL INFLAMMATION [None]
  - NEUTROPENIA [None]
  - OEDEMA PERIPHERAL [None]
  - ORAL INFECTION [None]
  - PYREXIA [None]
  - RASH [None]
  - SUDDEN DEATH [None]
